FAERS Safety Report 6634379-7 (Version None)
Quarter: 2010Q1

REPORT INFORMATION
  Report Type: 
  Country: None (occurrence: None)
  Receive Date: 20100315
  Receipt Date: 20100302
  Transmission Date: 20100710
  Serious: Yes (Hospitalization)
  Sender: FDA-Public Use
  Company Number: JP-ROCHE-660422

PATIENT
  Sex: Male

DRUGS (13)
  1. TOCILIZUMAB [Suspect]
     Indication: RHEUMATOID ARTHRITIS
     Route: 041
     Dates: start: 20090225, end: 20090225
  2. TOCILIZUMAB [Suspect]
     Route: 041
     Dates: start: 20090325, end: 20090325
  3. TOCILIZUMAB [Suspect]
     Route: 041
     Dates: start: 20090422, end: 20090422
  4. PREDNISOLONE [Concomitant]
     Dosage: DOSE FORM: PERORAL AGENT
     Route: 048
  5. DIGOSIN [Concomitant]
     Route: 048
  6. HALCION [Concomitant]
     Route: 048
  7. SENNOSIDE [Concomitant]
     Dosage: DOSE FORM: PERORAL AGENT
     Route: 048
  8. LANSOPRAZOLE [Concomitant]
     Dosage: DRUG REPORTED AS: LANSOPRAZOLE-OD.
     Route: 048
  9. NORVASC [Concomitant]
     Route: 048
  10. PANTOSIN [Concomitant]
     Route: 048
  11. VOLTAREN [Concomitant]
     Route: 054
  12. MOHRUS [Concomitant]
     Dosage: FORM: TAPE.
     Route: 061
  13. PAXIL [Concomitant]
     Route: 048

REACTIONS (2)
  - BURSITIS [None]
  - RIB FRACTURE [None]
